FAERS Safety Report 8154788 (Version 5)
Quarter: 2012Q4

REPORT INFORMATION
  Report Type: 
  Country: CA (occurrence: CA)
  Receive Date: 20110923
  Receipt Date: 20121127
  Transmission Date: 20130627
  Serious: Yes (Other)
  Sender: FDA-Public Use
  Company Number: PHHY2010CA72117

PATIENT
  Age: 67 Year
  Sex: Male

DRUGS (2)
  1. ZOMETA [Suspect]
     Indication: PROSTATE CANCER
     Dosage: 4 mg, Every 12 weeks
     Route: 042
     Dates: start: 20101022
  2. ZOMETA [Suspect]
     Dosage: 4 mg, Every 12 weeks
     Route: 042
     Dates: start: 201012

REACTIONS (9)
  - Fall [Unknown]
  - Tooth fracture [Unknown]
  - Blood pressure increased [Unknown]
  - Cold sweat [Unknown]
  - Respiratory rate increased [Unknown]
  - Device dislocation [Unknown]
  - Pain [Unknown]
  - Flushing [Unknown]
  - Anxiety [Unknown]
